FAERS Safety Report 8215288-9 (Version None)
Quarter: 2012Q1

REPORT INFORMATION
  Report Type: 
  Country: None (occurrence: None)
  Receive Date: 20120316
  Receipt Date: 20120312
  Transmission Date: 20120608
  Serious: Yes (Hospitalization, Other)
  Sender: FDA-Public Use
  Company Number: JP-SANOFI-AVENTIS-2012SA005951

PATIENT
  Age: 65 Year
  Sex: Female
  Weight: 55 kg

DRUGS (5)
  1. ATENOLOL AND CHLORTHALIDONE [Suspect]
     Route: 048
     Dates: start: 20070804, end: 20070811
  2. ASPIRIN [Suspect]
     Route: 048
     Dates: start: 20070804, end: 20071006
  3. ARGATROBAN [Concomitant]
     Indication: THROMBOSIS
     Route: 042
  4. ASPIRIN [Suspect]
     Route: 065
  5. ARGATROBAN [Concomitant]
     Route: 042

REACTIONS (2)
  - CEREBRAL HAEMORRHAGE [None]
  - HEMIPARESIS [None]
